FAERS Safety Report 11758322 (Version 1)
Quarter: 2015Q4

REPORT INFORMATION
  Report Type: Spontaneous
  Country: ES (occurrence: ES)
  Receive Date: 20151120
  Receipt Date: 20151120
  Transmission Date: 20160304
  Serious: Yes (Other)
  Sender: FDA-Public Use
  Company Number: ES-WATSON-2015-25069

PATIENT
  Age: 49 Year
  Sex: Female

DRUGS (2)
  1. MINOXIDIL (UNKNOWN) [Suspect]
     Active Substance: MINOXIDIL
     Indication: OCCUPATIONAL EXPOSURE TO PRODUCT
  2. MINOXIDIL (UNKNOWN) [Suspect]
     Active Substance: MINOXIDIL
     Indication: ALOPECIA
     Dosage: UNK
     Route: 061

REACTIONS (1)
  - Occupational asthma [Unknown]
